FAERS Safety Report 13326899 (Version 1)
Quarter: 2017Q1

REPORT INFORMATION
  Report Type: Spontaneous
  Country: GB (occurrence: GB)
  Receive Date: 20170312
  Receipt Date: 20170312
  Transmission Date: 20170428
  Serious: Yes (Life-Threatening)
  Sender: FDA-Public Use
  Company Number: PHFR2017GB001718

PATIENT
  Age: 62 Year
  Sex: Female
  Weight: 55.5 kg

DRUGS (2)
  1. PAZOPANIB [Suspect]
     Active Substance: PAZOPANIB
     Indication: RENAL CANCER
     Dosage: 600 MG, QD
     Route: 048
     Dates: end: 20170221
  2. MIRTAZAPINE. [Concomitant]
     Active Substance: MIRTAZAPINE
     Indication: PRODUCT USED FOR UNKNOWN INDICATION
     Dosage: UNK
     Route: 065

REACTIONS (9)
  - Aphasia [Unknown]
  - Headache [Unknown]
  - Confusional state [Unknown]
  - Respiratory arrest [Recovered/Resolved]
  - Agitation [Unknown]
  - Posterior reversible encephalopathy syndrome [Recovering/Resolving]
  - Seizure [Recovered/Resolved]
  - Photophobia [Unknown]
  - Hypertension [Not Recovered/Not Resolved]

NARRATIVE: CASE EVENT DATE: 20170221
